FAERS Safety Report 7930531-9 (Version None)
Quarter: 2011Q4

REPORT INFORMATION
  Report Type: 
  Country: None (occurrence: None)
  Receive Date: 20111121
  Receipt Date: 20111107
  Transmission Date: 20120403
  Serious: Yes (Life-Threatening, Hospitalization, Other)
  Sender: FDA-Public Use
  Company Number: US-ROCHE-1012153

PATIENT
  Age: 52 Year
  Sex: Female

DRUGS (7)
  1. HERCEPTIN [Suspect]
     Indication: BREAST CANCER
     Dosage: OVER 90 MIN WEEK 1, THEN 2MG/KG IV OVER 30 MIN DURING SUBSEQUENT 12 WEEKS
     Route: 042
     Dates: start: 20091202
  2. FLUOROURACIL [Suspect]
     Indication: BREAST CANCER
     Dosage: ON DAY 1
     Route: 042
     Dates: start: 20091202
  3. HERCEPTIN [Suspect]
     Dosage: OVER 30 MIN WEEKLY X 12 WEEKS.
  4. PACLITAXEL [Suspect]
     Indication: BREAST CANCER
     Dosage: OVER 60 MIN WEEKLY
     Route: 042
     Dates: start: 20091202
  5. CYCLOPHOSPHAMIDE [Suspect]
     Indication: BREAST CANCER
     Dosage: OVER 30 MIN ON DAY 1
     Dates: start: 20091202
  6. HERCEPTIN [Suspect]
     Dosage: OVER 60 MIN
     Route: 042
  7. EPIRUBICIN HYDROCHLORIDE [Suspect]
     Indication: BREAST CANCER
     Dosage: OVER 15 MIN ON DAY 1
     Route: 042
     Dates: start: 20091202

REACTIONS (11)
  - NEUROPATHY PERIPHERAL [None]
  - MYOCARDIAL INFARCTION [None]
  - HYPOALBUMINAEMIA [None]
  - PNEUMONIA [None]
  - LUNG INFECTION [None]
  - NEUTROPHIL COUNT DECREASED [None]
  - PLATELET COUNT DECREASED [None]
  - CORONARY ARTERY DISEASE [None]
  - HYPOTENSION [None]
  - ANAEMIA [None]
  - WHITE BLOOD CELL COUNT DECREASED [None]
